FAERS Safety Report 15810561 (Version 2)
Quarter: 2019Q2

REPORT INFORMATION
  Report Type: Spontaneous
  Country: US (occurrence: US)
  Receive Date: 20190111
  Receipt Date: 20190408
  Transmission Date: 20190711
  Serious: Yes (Other)
  Sender: FDA-Public Use
  Company Number: US-BRISTOL-MYERS SQUIBB COMPANY-BMS-2019-000522

PATIENT
  Sex: Female
  Weight: 81.64 kg

DRUGS (1)
  1. NULOJIX [Suspect]
     Active Substance: BELATACEPT
     Indication: RENAL TRANSPLANT
     Dosage: 375 MG, UNK
     Route: 042
     Dates: start: 20110901

REACTIONS (2)
  - Kidney infection [Unknown]
  - Pyrexia [Unknown]
